FAERS Safety Report 4852508-2 (Version None)
Quarter: 2005Q4

REPORT INFORMATION
  Report Type: 
  Country: None (occurrence: None)
  Receive Date: 20051213
  Receipt Date: 20051201
  Transmission Date: 20060501
  Serious: Yes (Other)
  Sender: FDA-Public Use
  Company Number: PHBS2005CH17929

PATIENT
  Sex: Female

DRUGS (3)
  1. ZOMETA [Suspect]
     Indication: METASTASES TO BONE
     Dosage: 4 MG, QMO
     Route: 042
     Dates: start: 20040101, end: 20051101
  2. ANTIINFLAMMATORY/ANTIRHEUMATIC NON-STEROIDS [Concomitant]
     Route: 065
  3. CHEMOTHERAPEUTICS,OTHER [Concomitant]
     Route: 065

REACTIONS (2)
  - OSTEONECROSIS [None]
  - TOOTHACHE [None]
